FAERS Safety Report 5940459-1 (Version None)
Quarter: 2008Q4

REPORT INFORMATION
  Report Type: 
  Country: None (occurrence: None)
  Receive Date: 20081030
  Receipt Date: 20081015
  Transmission Date: 20090506
  Serious: Yes (Life-Threatening, Hospitalization, Other)
  Sender: FDA-Public Use
  Company Number: DSA_32377_2008

PATIENT
  Age: 81 Year
  Sex: Female
  Weight: 57 kg

DRUGS (12)
  1. RENIVEZE (RENIVEZE - ENALAPRIL LORATADINE) (NOT SPECIFIED) [Suspect]
     Indication: HYPERTENSION
     Dosage: (5 MG QD ORAL)
     Route: 048
     Dates: start: 20080416, end: 20080815
  2. SINGULAIR [Suspect]
     Indication: DRUG USE FOR UNKNOWN INDICATION
     Dosage: 10 MG QD ORAL
     Route: 048
     Dates: start: 20070801, end: 20080815
  3. MUCODYNE (MUCODYNE - CARBOCISTEINE) (NOT SPECIFIED) [Suspect]
     Indication: DRUG USE FOR UNKNOWN INDICATION
     Dosage: 500 MG TID ORAL
     Route: 048
  4. URSO /00465701/ (URSO-URODESOXYCHOLIC ACID) (NOT SPECIFIED) [Suspect]
     Indication: CHOLELITHIASIS
     Dosage: 100 MG BID ORAL
     Route: 048
     Dates: start: 19890101, end: 20080815
  5. UNIPHYL (UNIPHYL LA - THEOPHYLLINE ) (NOT SPECIFIED) [Suspect]
     Indication: DRUG USE FOR UNKNOWN INDICATION
     Dosage: 200 MG QD ORAL
     Route: 048
     Dates: end: 20080805
  6. CLARITIN [Suspect]
     Indication: ASTHMA
     Dosage: 10 MG QD ORAL
     Route: 048
     Dates: start: 20070801, end: 20080815
  7. CLARITIN [Suspect]
     Indication: RHINITIS ALLERGIC
     Dosage: 10 MG QD ORAL
     Route: 048
     Dates: start: 20070801, end: 20080815
  8. AMLODIN (AMLODIN - AMLODIPINE BESILATE) (NOT SPECIFIED) [Suspect]
     Indication: HYPERTENSION
     Dosage: 2.5 MG BID ORAL
     Route: 048
     Dates: end: 20080415
  9. MOHRUS (MOHRUS - KETOPROFEN) (NOT SPECIFIED) [Suspect]
     Indication: DRUG USE FOR UNKNOWN INDICATION
     Dosage: DF TOPICAL
     Route: 061
     Dates: start: 19940101, end: 20080815
  10. ASPIRIN [Concomitant]
  11. INTAL [Concomitant]
  12. PULMICORT-100 [Concomitant]

REACTIONS (6)
  - ALLERGIC GRANULOMATOUS ANGIITIS [None]
  - ANOREXIA [None]
  - HYPERGLOBULINAEMIA [None]
  - LEUKOCYTOCLASTIC VASCULITIS [None]
  - LYMPHOCYTE STIMULATION TEST POSITIVE [None]
  - TUBULOINTERSTITIAL NEPHRITIS [None]
